FAERS Safety Report 6354499-4 (Version None)
Quarter: 2009Q3

REPORT INFORMATION
  Report Type: 
  Country: None (occurrence: None)
  Receive Date: 20090914
  Receipt Date: 20090910
  Transmission Date: 20100115
  Serious: Yes (Death)
  Sender: FDA-Public Use
  Company Number: PHHY2009BR38680

PATIENT
  Sex: Female

DRUGS (4)
  1. DIOVAN [Suspect]
     Dosage: 160 MG, UNK
  2. DIOVAN [Suspect]
     Dosage: 80 MG, UNK
  3. GALVUS [Suspect]
     Dosage: 100 MG, UNK
  4. GALVUS [Suspect]
     Dosage: 50 MG, UNK

REACTIONS (1)
  - DEATH [None]
